FAERS Safety Report 7726773-8 (Version None)
Quarter: 2011Q3

REPORT INFORMATION
  Report Type: 
  Country: None (occurrence: None)
  Receive Date: 20110902
  Receipt Date: 20110901
  Transmission Date: 20111222
  Serious: Yes (Death, Hospitalization)
  Sender: FDA-Public Use
  Company Number: US-GLAXOSMITHKLINE-A0930818A

PATIENT
  Age: 71 Year
  Sex: Male

DRUGS (1)
  1. VOTRIENT [Suspect]
     Indication: HEPATIC NEOPLASM MALIGNANT
     Dosage: 200MG PER DAY
     Route: 048

REACTIONS (6)
  - MALAISE [None]
  - BLOOD TEST ABNORMAL [None]
  - DEATH [None]
  - OFF LABEL USE [None]
  - RENAL FAILURE [None]
  - COUGH [None]
